FAERS Safety Report 18339580 (Version 1)
Quarter: 2020Q4

REPORT INFORMATION
  Report Type: Report from Study
  Country: GB (occurrence: GB)
  Receive Date: 20201002
  Receipt Date: 20201002
  Transmission Date: 20210113
  Serious: Yes (Life-Threatening, Hospitalization, Other)
  Sender: FDA-Public Use
  Company Number: NVSC2019GB094578

PATIENT
  Age: 70 Year
  Sex: Female

DRUGS (29)
  1. OSELTAMIVIR [Concomitant]
     Active Substance: OSELTAMIVIR
     Indication: PROPHYLAXIS
     Dosage: 75 MG, BID
     Route: 048
     Dates: start: 20190328, end: 20190329
  2. FENTANYL. [Concomitant]
     Active Substance: FENTANYL
     Indication: PAIN IN EXTREMITY
     Dosage: UNK
     Route: 065
     Dates: start: 20191209
  3. ORAMORPH [Concomitant]
     Active Substance: MORPHINE SULFATE
     Indication: PAIN IN EXTREMITY
  4. PREDNISOLON [Concomitant]
     Active Substance: PREDNISOLONE
     Indication: BACK PAIN
     Dosage: UNK
     Route: 065
     Dates: start: 20191213, end: 202001
  5. OMEPRAZOLE. [Concomitant]
     Active Substance: OMEPRAZOLE
     Indication: GASTRIC ULCER
     Dosage: UNK
     Route: 065
     Dates: start: 20180625, end: 20190321
  6. KISQALI [Suspect]
     Active Substance: RIBOCICLIB
     Dosage: UNK
     Route: 048
     Dates: start: 20180924, end: 20181009
  7. ACETAMINOPHEN. [Concomitant]
     Active Substance: ACETAMINOPHEN
     Indication: PRODUCT USED FOR UNKNOWN INDICATION
     Dosage: UNK
     Route: 065
  8. TETRACYCLINE [Concomitant]
     Active Substance: TETRACYCLINE
     Indication: PRODUCT USED FOR UNKNOWN INDICATION
     Dosage: UNK
     Route: 065
  9. RANITIDINE. [Concomitant]
     Active Substance: RANITIDINE
     Indication: GASTRIC ULCER
     Dosage: 150 MG, BID
     Route: 048
     Dates: start: 20190328, end: 201904
  10. DEXAMETHASONE. [Concomitant]
     Active Substance: DEXAMETHASONE
     Indication: PAIN IN EXTREMITY
     Dosage: UNK
     Route: 065
     Dates: start: 20180924, end: 20180925
  11. GABAPENTIN. [Concomitant]
     Active Substance: GABAPENTIN
     Indication: PAIN IN EXTREMITY
     Dosage: UNK
     Route: 065
     Dates: start: 20180523, end: 201812
  12. DALTEPARIN [Concomitant]
     Active Substance: DALTEPARIN
     Indication: PROPHYLAXIS
     Dosage: UNK
     Route: 065
     Dates: start: 20180924, end: 20180926
  13. KISQALI [Suspect]
     Active Substance: RIBOCICLIB
     Indication: BREAST CANCER
     Dosage: 600 MG
     Route: 048
     Dates: start: 20180912, end: 20180923
  14. KISQALI [Suspect]
     Active Substance: RIBOCICLIB
     Dosage: 400 MG
     Route: 048
     Dates: start: 20190904
  15. BUTRANS [Concomitant]
     Active Substance: BUPRENORPHINE
     Indication: PAIN
     Dosage: 10 UG/HR, QW (PATCH)
     Route: 062
     Dates: start: 20181102, end: 20181212
  16. BUTRANS [Concomitant]
     Active Substance: BUPRENORPHINE
     Indication: PAIN IN EXTREMITY
     Dosage: 20 UG/HR, QW (PATCH)
     Route: 062
     Dates: start: 20181212, end: 20190214
  17. APIXABAN [Concomitant]
     Active Substance: APIXABAN
     Indication: PROPHYLAXIS
     Dosage: UNK
     Route: 065
     Dates: start: 20180926
  18. KISQALI [Suspect]
     Active Substance: RIBOCICLIB
     Dosage: 400 MG
     Route: 048
     Dates: start: 20181212, end: 20190226
  19. KISQALI [Suspect]
     Active Substance: RIBOCICLIB
     Dosage: UNK
     Route: 048
     Dates: start: 20190227, end: 20190430
  20. APIXABAN [Concomitant]
     Active Substance: APIXABAN
     Dosage: 2.5 MG, BID
     Route: 048
     Dates: start: 20190322
  21. DICLOFENAC [Concomitant]
     Active Substance: DICLOFENAC
     Indication: PRODUCT USED FOR UNKNOWN INDICATION
     Dosage: UNK
     Route: 065
     Dates: start: 20191207
  22. GABAPENTIN. [Concomitant]
     Active Substance: GABAPENTIN
     Dosage: UNK
     Route: 065
     Dates: start: 20191207
  23. KISQALI [Suspect]
     Active Substance: RIBOCICLIB
     Dosage: 600 MG
     Route: 048
     Dates: start: 20181010, end: 20181203
  24. KISQALI [Suspect]
     Active Substance: RIBOCICLIB
     Dosage: UNK
     Route: 048
     Dates: start: 20181204, end: 20181211
  25. FENTANYL. [Concomitant]
     Active Substance: FENTANYL
     Indication: PAIN
     Dosage: 12 MG/H, 72 HOURS
     Route: 062
     Dates: start: 20190402
  26. ORAMORPH [Concomitant]
     Active Substance: MORPHINE SULFATE
     Indication: PAIN
     Dosage: 5 MG, PRN
     Route: 048
     Dates: start: 20190324
  27. KISQALI [Suspect]
     Active Substance: RIBOCICLIB
     Dosage: 400 MG
     Route: 048
     Dates: start: 20190501, end: 20190823
  28. KISQALI [Suspect]
     Active Substance: RIBOCICLIB
     Dosage: UNK
     Route: 048
     Dates: start: 20190824, end: 20190903
  29. OMEPRAZOLE. [Concomitant]
     Active Substance: OMEPRAZOLE
     Dosage: UNK
     Route: 065
     Dates: start: 201904

REACTIONS (72)
  - Acute kidney injury [Recovered/Resolved]
  - Pleural effusion [Not Recovered/Not Resolved]
  - Anaemia [Recovered/Resolved]
  - Insomnia [Not Recovered/Not Resolved]
  - Blood albumin decreased [Recovered/Resolved]
  - Dyspnoea [Not Recovered/Not Resolved]
  - Malaise [Recovering/Resolving]
  - Fluid overload [Not Recovered/Not Resolved]
  - Cholecystitis [Recovered/Resolved]
  - Angina pectoris [Recovered/Resolved]
  - White blood cell count decreased [Recovered/Resolved]
  - Constipation [Recovered/Resolved]
  - Hypocalcaemia [Recovered/Resolved]
  - Blood albumin decreased [Recovered/Resolved]
  - Blood albumin decreased [Recovered/Resolved]
  - Blood albumin decreased [Recovered/Resolved]
  - Blood alkaline phosphatase increased [Recovered/Resolved]
  - Blood alkaline phosphatase increased [Not Recovered/Not Resolved]
  - Paraesthesia [Not Recovered/Not Resolved]
  - Leukopenia [Not Recovered/Not Resolved]
  - Thrombocytopenia [Not Recovered/Not Resolved]
  - Neutropenia [Recovered/Resolved]
  - Pulmonary hypertension [Not Recovered/Not Resolved]
  - Thrombocytopenia [Recovered/Resolved]
  - Pulmonary oedema [Not Recovered/Not Resolved]
  - Anaemia [Recovered/Resolved]
  - White blood cell count decreased [Recovered/Resolved]
  - Oedema peripheral [Not Recovered/Not Resolved]
  - Anaemia [Recovered/Resolved]
  - Hyponatraemia [Recovered/Resolved]
  - Liver injury [Recovered/Resolved]
  - Anaemia [Recovered/Resolved]
  - Confusional state [Recovered/Resolved]
  - Neutropenia [Recovered/Resolved]
  - Anaemia [Recovered/Resolved]
  - Anaemia [Recovered/Resolved]
  - White blood cell count decreased [Recovered/Resolved]
  - White blood cell count decreased [Recovered/Resolved]
  - Blood creatinine increased [Recovered/Resolved]
  - Alanine aminotransferase increased [Recovered/Resolved]
  - Blood albumin decreased [Recovered/Resolved]
  - Blood albumin decreased [Recovered/Resolved]
  - Spinal osteoarthritis [Recovering/Resolving]
  - Neutropenia [Not Recovered/Not Resolved]
  - Anaemia [Recovered/Resolved]
  - Anaemia [Recovered/Resolved]
  - Anaemia [Not Recovered/Not Resolved]
  - Alanine aminotransferase increased [Recovered/Resolved]
  - Hypocalcaemia [Recovered/Resolved]
  - Hypocalcaemia [Recovered/Resolved]
  - Hypocalcaemia [Not Recovered/Not Resolved]
  - Blood albumin decreased [Recovered/Resolved]
  - Blood alkaline phosphatase increased [Recovered/Resolved]
  - Right atrial dilatation [Not Recovered/Not Resolved]
  - Atrial fibrillation [Not Recovered/Not Resolved]
  - White blood cell count decreased [Recovered/Resolved]
  - White blood cell count decreased [Recovered/Resolved]
  - Blood albumin decreased [Recovered/Resolved]
  - Blood albumin decreased [Recovered/Resolved]
  - Blood albumin decreased [Recovered/Resolved]
  - Blood alkaline phosphatase increased [Recovered/Resolved]
  - Fall [Recovered/Resolved]
  - Skin laceration [Not Recovered/Not Resolved]
  - Wrist fracture [Not Recovered/Not Resolved]
  - Hypophosphataemia [Unknown]
  - Pneumonia [Recovered/Resolved]
  - Neutropenia [Recovered/Resolved]
  - Neutropenia [Recovered/Resolved]
  - Hypocalcaemia [Recovered/Resolved]
  - Blood alkaline phosphatase increased [Recovered/Resolved]
  - Blood alkaline phosphatase increased [Recovered/Resolved]
  - Blood alkaline phosphatase increased [Recovered/Resolved]

NARRATIVE: CASE EVENT DATE: 20180912
